FAERS Safety Report 22249106 (Version 1)
Quarter: 2023Q2

REPORT INFORMATION
  Report Type: Spontaneous
  Country: CN (occurrence: CN)
  Receive Date: 20230425
  Receipt Date: 20230425
  Transmission Date: 20230722
  Serious: Yes (Other)
  Sender: FDA-Public Use
  Company Number: None

PATIENT
  Age: 33 Year
  Sex: Male
  Weight: 65 kg

DRUGS (5)
  1. MANNITOL [Suspect]
     Active Substance: MANNITOL
     Indication: Diuretic therapy
     Dosage: 125 ML, Q8H, DOSAGE FORM: INJECTION
     Route: 041
     Dates: start: 20230415, end: 20230415
  2. MANNITOL [Suspect]
     Active Substance: MANNITOL
     Indication: Swelling
  3. MANNITOL [Suspect]
     Active Substance: MANNITOL
     Indication: Symptomatic treatment
  4. MANNITOL [Suspect]
     Active Substance: MANNITOL
     Indication: Intervertebral disc protrusion
  5. MANNITOL [Suspect]
     Active Substance: MANNITOL
     Indication: Nerve compression

REACTIONS (3)
  - Drug hypersensitivity [Recovering/Resolving]
  - Face oedema [Recovering/Resolving]
  - Rash [Recovering/Resolving]

NARRATIVE: CASE EVENT DATE: 20230415
